FAERS Safety Report 12084006 (Version 1)
Quarter: 2016Q1

REPORT INFORMATION
  Report Type: Spontaneous
  Country: CH (occurrence: CH)
  Receive Date: 20160217
  Receipt Date: 20160217
  Transmission Date: 20160526
  Serious: Yes (Life-Threatening, Other)
  Sender: FDA-Public Use
  Company Number: CH-IGI LABORATORIES, INC.-1047966

PATIENT
  Age: 54 Year
  Sex: Female

DRUGS (8)
  1. ZINACEF [Suspect]
     Active Substance: CEFUROXIME SODIUM
     Indication: ANTIBIOTIC PROPHYLAXIS
     Route: 042
     Dates: start: 20151014, end: 20151014
  2. PROPOFOL. [Concomitant]
     Active Substance: PROPOFOL
     Route: 042
     Dates: start: 20151014, end: 20151014
  3. ESMERON [Suspect]
     Active Substance: ROCURONIUM BROMIDE
     Route: 042
     Dates: start: 20151014, end: 20151014
  4. DORMICUM [Concomitant]
     Active Substance: MIDAZOLAM\MIDAZOLAM HYDROCHLORIDE
     Route: 048
     Dates: start: 20151014, end: 20151014
  5. REMIFENTANIL [Concomitant]
     Active Substance: REMIFENTANIL
     Route: 042
     Dates: start: 20151014, end: 20151014
  6. FENTANYL. [Concomitant]
     Active Substance: FENTANYL
     Route: 042
     Dates: start: 20151014, end: 20151014
  7. EPHEDRIN [Concomitant]
     Active Substance: EPHEDRINE HYDROCHLORIDE
     Route: 042
     Dates: start: 20151014, end: 20151014
  8. NOVALGIN [Concomitant]
     Active Substance: METAMIZOLE SODIUM
     Dates: start: 20151014

REACTIONS (7)
  - Atrioventricular block second degree [Recovered/Resolved]
  - Rash [Recovered/Resolved]
  - Type I hypersensitivity [Not Recovered/Not Resolved]
  - Bronchospasm [Recovered/Resolved]
  - Endotracheal intubation complication [Recovered/Resolved]
  - Blood pressure decreased [Recovered/Resolved]
  - Anaphylactic reaction [Recovered/Resolved]

NARRATIVE: CASE EVENT DATE: 20151014
